FAERS Safety Report 5023310-6 (Version None)
Quarter: 2006Q2

REPORT INFORMATION
  Report Type: 
  Country: None (occurrence: None)
  Receive Date: 20060501
  Receipt Date: 20060302
  Transmission Date: 20061013
  Serious: Yes (Other)
  Sender: FDA-Public Use
  Company Number: USA040773868

PATIENT
  Age: 20 Year
  Sex: Female
  Weight: 45.8 kg

DRUGS (16)
  1. ZYPREXA [Suspect]
     Indication: BIPOLAR DISORDER
     Dosage: 10 MG, DAILY, (1/D), ORAL
     Route: 048
     Dates: start: 20021206
  2. SYMBYAX [Suspect]
     Indication: BIPOLAR DISORDER
     Dosage: DAILY (1/D), ORAL
     Route: 048
     Dates: start: 20040130
  3. PROZAC [Suspect]
     Indication: BIPOLAR DISORDER
     Dosage: 60 MG, DAILY (1/D)
  4. EFFEXOR [Concomitant]
  5. LLEGRA-D [Concomitant]
  6. BUSPAR [Concomitant]
  7. PROVENTIL (SALBUTAMOL SULFATE) [Concomitant]
  8. YASMIN [Concomitant]
  9. NAPROXEN SODIUM [Concomitant]
  10. NEXIUM [Concomitant]
  11. TOPAMAX [Concomitant]
  12. DEPAKOTE [Concomitant]
  13. HYDROXYZINE PAMOATE [Concomitant]
  14. LEXAPRO [Concomitant]
  15. SINGULAIR [Concomitant]
  16. AXID [Concomitant]

REACTIONS (4)
  - ABDOMINAL DISCOMFORT [None]
  - DIABETES MELLITUS NON-INSULIN-DEPENDENT [None]
  - FOOD CRAVING [None]
  - WEIGHT INCREASED [None]
